FAERS Safety Report 18232049 (Version 3)
Quarter: 2021Q2

REPORT INFORMATION
  Report Type: Spontaneous
  Country: US (occurrence: US)
  Receive Date: 20200904
  Receipt Date: 20210429
  Transmission Date: 20210717
  Serious: No
  Sender: FDA-Public Use
  Company Number: US-GLENMARK PHARMACEUTICALS-2020GMK048629

PATIENT

DRUGS (5)
  1. LOSARTAN POTASSIUM. [Concomitant]
     Active Substance: LOSARTAN POTASSIUM
     Indication: HYPERTENSION
     Dosage: 100 MILLIGRAM, UNK
     Route: 048
  2. HYDROCHLOROTHIAZIDE. [Concomitant]
     Active Substance: HYDROCHLOROTHIAZIDE
     Indication: HYPERTENSION
     Dosage: 25 MILLIGRAM, UNK
     Route: 048
  3. GABAPENTIN TABLETS USP, 600 MG [Suspect]
     Active Substance: GABAPENTIN
     Dosage: 1 DOSAGE FORM, BID (600 MG, ONE IN THE DAY, ONE IN THE MORNING)
     Route: 048
  4. DILT?XR [Concomitant]
     Active Substance: DILTIAZEM
     Indication: HYPERTENSION
     Dosage: 240 MILLIGRAM, UNK
     Route: 048
  5. GABAPENTIN TABLETS USP, 600 MG [Suspect]
     Active Substance: GABAPENTIN
     Indication: NEURALGIA
     Dosage: 1 DOSAGE FORM, BID (600 MG, ONE IN THE DAY, ONE IN THE MORNING)
     Route: 048

REACTIONS (12)
  - Somnolence [Not Recovered/Not Resolved]
  - Dizziness [Not Recovered/Not Resolved]
  - Speech disorder [Not Recovered/Not Resolved]
  - Arthralgia [Unknown]
  - Neck pain [Unknown]
  - Depression [Unknown]
  - Drug ineffective [Unknown]
  - Back pain [Unknown]
  - Vision blurred [Not Recovered/Not Resolved]
  - Insomnia [Unknown]
  - Dyskinesia [Unknown]
  - Coordination abnormal [Not Recovered/Not Resolved]
